FAERS Safety Report 4908190-9 (Version None)
Quarter: 2006Q1

REPORT INFORMATION
  Report Type: 
  Country: None (occurrence: None)
  Receive Date: 20060210
  Receipt Date: 20060131
  Transmission Date: 20060701
  Serious: Yes (Hospitalization)
  Sender: FDA-Public Use
  Company Number: FR-JNJFOC-20060200034

PATIENT
  Age: 85 Year
  Sex: Female

DRUGS (4)
  1. HALDOL [Suspect]
     Indication: SENILE DEMENTIA
     Route: 048
  2. STABLON [Suspect]
     Indication: DRUG USE FOR UNKNOWN INDICATION
  3. TRIVASTAL [Concomitant]
  4. ARICEPT [Concomitant]

REACTIONS (4)
  - HYPOKINESIA [None]
  - MIOSIS [None]
  - MOTOR DYSFUNCTION [None]
  - SOMNOLENCE [None]
